FAERS Safety Report 7302622 (Version 48)
Quarter: 2023Q4

REPORT INFORMATION
  Report Type: Spontaneous
  Country: CA (occurrence: CA)
  Receive Date: 20100302
  Receipt Date: 20231213
  Transmission Date: 20240109
  Serious: Yes (Other)
  Sender: FDA-Public Use
  Company Number: CA-MERCK-0907CAN00093

PATIENT
  Age: 52 Year
  Sex: Male

DRUGS (492)
  1. ISENTRESS [Suspect]
     Active Substance: RALTEGRAVIR POTASSIUM
     Indication: HIV infection
     Dosage: 400 MG, UNK
     Route: 048
  2. ISENTRESS [Suspect]
     Active Substance: RALTEGRAVIR POTASSIUM
     Dosage: UNK
     Route: 065
  3. SUSTIVA [Suspect]
     Active Substance: EFAVIRENZ
     Indication: HIV infection
     Dosage: DOSAGE FORM NOT SPECIFIED
     Route: 048
  4. CRIXIVAN [Suspect]
     Active Substance: INDINAVIR SULFATE
     Indication: HIV infection
     Dosage: UNK
     Route: 048
  5. CRIXIVAN [Suspect]
     Active Substance: INDINAVIR SULFATE
     Dosage: UNK
     Route: 065
  6. CRIXIVAN [Suspect]
     Active Substance: INDINAVIR SULFATE
     Dosage: UNK
     Route: 048
  7. CRIXIVAN [Suspect]
     Active Substance: INDINAVIR SULFATE
     Dosage: UNK
     Route: 065
  8. CRIXIVAN [Suspect]
     Active Substance: INDINAVIR SULFATE
     Dosage: UNK
     Route: 048
  9. CRIXIVAN [Suspect]
     Active Substance: INDINAVIR SULFATE
     Dosage: UNK
     Route: 065
  10. CRIXIVAN [Suspect]
     Active Substance: INDINAVIR SULFATE
     Dosage: UNK
     Route: 048
  11. CRIXIVAN [Suspect]
     Active Substance: INDINAVIR SULFATE
     Dosage: UNK
     Route: 065
  12. CRIXIVAN [Suspect]
     Active Substance: INDINAVIR SULFATE
     Dosage: UNK
     Route: 048
  13. CRIXIVAN [Suspect]
     Active Substance: INDINAVIR SULFATE
     Dosage: UNK
     Route: 065
  14. CRIXIVAN [Suspect]
     Active Substance: INDINAVIR SULFATE
     Dosage: UNK
     Route: 048
  15. CRIXIVAN [Suspect]
     Active Substance: INDINAVIR SULFATE
     Dosage: UNK
     Route: 065
  16. LAMIVUDINE [Suspect]
     Active Substance: LAMIVUDINE
     Indication: HIV infection
     Dosage: DOSAGE FORM: NOT SPECIFIED
     Route: 065
  17. LAMIVUDINE [Suspect]
     Active Substance: LAMIVUDINE
     Indication: Antiretroviral therapy
     Dosage: DOSAGE FORM: NOT SPECIFIED
     Route: 048
  18. LAMIVUDINE [Suspect]
     Active Substance: LAMIVUDINE
     Dosage: UNK
     Route: 065
  19. LAMIVUDINE [Suspect]
     Active Substance: LAMIVUDINE
     Dosage: DOSAGE FORM: NOT SPECIFIED
     Route: 065
  20. LAMIVUDINE [Suspect]
     Active Substance: LAMIVUDINE
     Dosage: DOSAGE FORM: NOT SPECIFIED
     Route: 048
  21. LAMIVUDINE [Suspect]
     Active Substance: LAMIVUDINE
     Dosage: UNK
     Route: 065
  22. LAMIVUDINE [Suspect]
     Active Substance: LAMIVUDINE
     Dosage: DOSAGE FORM: NOT SPECIFIED
     Route: 065
  23. LAMIVUDINE [Suspect]
     Active Substance: LAMIVUDINE
     Dosage: DOSAGE FORM: NOT SPECIFIED
     Route: 048
  24. LAMIVUDINE [Suspect]
     Active Substance: LAMIVUDINE
     Dosage: UNK
     Route: 065
  25. LAMIVUDINE [Suspect]
     Active Substance: LAMIVUDINE
     Dosage: DOSAGE FORM: NOT SPECIFIED
     Route: 065
  26. LAMIVUDINE [Suspect]
     Active Substance: LAMIVUDINE
     Dosage: DOSAGE FORM: NOT SPECIFIED
     Route: 048
  27. LAMIVUDINE [Suspect]
     Active Substance: LAMIVUDINE
     Dosage: UNK
     Route: 065
  28. LAMIVUDINE [Suspect]
     Active Substance: LAMIVUDINE
     Dosage: DOSAGE FORM: NOT SPECIFIED
     Route: 065
  29. LAMIVUDINE [Suspect]
     Active Substance: LAMIVUDINE
     Dosage: DOSAGE FORM: NOT SPECIFIED
     Route: 048
  30. LAMIVUDINE [Suspect]
     Active Substance: LAMIVUDINE
     Dosage: UNK
     Route: 065
  31. LAMIVUDINE [Suspect]
     Active Substance: LAMIVUDINE
     Dosage: DOSAGE FORM: NOT SPECIFIED
     Route: 065
  32. LAMIVUDINE [Suspect]
     Active Substance: LAMIVUDINE
     Dosage: DOSAGE FORM: NOT SPECIFIED
     Route: 048
  33. LAMIVUDINE [Suspect]
     Active Substance: LAMIVUDINE
     Dosage: UNK
     Route: 065
  34. ABACAVIR SUCCINATE [Suspect]
     Active Substance: ABACAVIR SUCCINATE
     Indication: HIV infection
     Dosage: UNK
     Route: 048
     Dates: start: 200802
  35. ABACAVIR SUCCINATE [Suspect]
     Active Substance: ABACAVIR SUCCINATE
     Indication: Antiretroviral therapy
     Dosage: UNK
     Route: 048
  36. ABACAVIR SUCCINATE [Suspect]
     Active Substance: ABACAVIR SUCCINATE
     Dosage: UNK
     Route: 065
  37. ABACAVIR SUCCINATE [Suspect]
     Active Substance: ABACAVIR SUCCINATE
     Dosage: UNK
     Route: 065
  38. ABACAVIR SUCCINATE [Suspect]
     Active Substance: ABACAVIR SUCCINATE
     Dosage: UNK
     Route: 048
  39. ABACAVIR SUCCINATE [Suspect]
     Active Substance: ABACAVIR SUCCINATE
     Dosage: UNK
     Route: 065
  40. ABACAVIR SUCCINATE [Suspect]
     Active Substance: ABACAVIR SUCCINATE
     Dosage: UNK
     Route: 048
  41. ABACAVIR SUCCINATE [Suspect]
     Active Substance: ABACAVIR SUCCINATE
     Dosage: UNK
     Route: 065
  42. ABACAVIR SUCCINATE [Suspect]
     Active Substance: ABACAVIR SUCCINATE
     Dosage: UNK
     Route: 065
  43. ABACAVIR SUCCINATE [Suspect]
     Active Substance: ABACAVIR SUCCINATE
     Dosage: UNK
     Route: 048
  44. ABACAVIR SUCCINATE [Suspect]
     Active Substance: ABACAVIR SUCCINATE
     Dosage: UNK
     Route: 065
  45. ABACAVIR SUCCINATE [Suspect]
     Active Substance: ABACAVIR SUCCINATE
     Dosage: UNK
     Route: 048
  46. ABACAVIR SUCCINATE [Suspect]
     Active Substance: ABACAVIR SUCCINATE
     Dosage: UNK
     Route: 065
  47. ABACAVIR SUCCINATE [Suspect]
     Active Substance: ABACAVIR SUCCINATE
     Dosage: UNK
     Route: 065
  48. ABACAVIR SUCCINATE [Suspect]
     Active Substance: ABACAVIR SUCCINATE
     Dosage: UNK
     Route: 048
  49. ABACAVIR SUCCINATE [Suspect]
     Active Substance: ABACAVIR SUCCINATE
     Dosage: UNK
     Route: 065
  50. ABACAVIR SUCCINATE [Suspect]
     Active Substance: ABACAVIR SUCCINATE
     Dosage: UNK
     Route: 048
  51. ABACAVIR SUCCINATE [Suspect]
     Active Substance: ABACAVIR SUCCINATE
     Dosage: UNK
     Route: 065
  52. ABACAVIR SUCCINATE [Suspect]
     Active Substance: ABACAVIR SUCCINATE
     Dosage: UNK
     Route: 065
  53. ABACAVIR SUCCINATE [Suspect]
     Active Substance: ABACAVIR SUCCINATE
     Dosage: UNK
     Route: 048
  54. ABACAVIR SUCCINATE [Suspect]
     Active Substance: ABACAVIR SUCCINATE
     Dosage: UNK
     Route: 065
  55. ABACAVIR SUCCINATE [Suspect]
     Active Substance: ABACAVIR SUCCINATE
     Dosage: UNK
     Route: 048
  56. ABACAVIR SUCCINATE [Suspect]
     Active Substance: ABACAVIR SUCCINATE
     Dosage: UNK
     Route: 065
  57. ABACAVIR SUCCINATE [Suspect]
     Active Substance: ABACAVIR SUCCINATE
     Dosage: UNK
     Route: 065
  58. ABACAVIR SUCCINATE [Suspect]
     Active Substance: ABACAVIR SUCCINATE
     Dosage: UNK
     Route: 048
  59. ABACAVIR SUCCINATE [Suspect]
     Active Substance: ABACAVIR SUCCINATE
     Dosage: UNK
     Route: 065
  60. ABACAVIR SUCCINATE [Suspect]
     Active Substance: ABACAVIR SUCCINATE
     Dosage: UNK
     Route: 048
  61. ABACAVIR SUCCINATE [Suspect]
     Active Substance: ABACAVIR SUCCINATE
     Dosage: UNK
     Route: 065
  62. ABACAVIR SUCCINATE [Suspect]
     Active Substance: ABACAVIR SUCCINATE
     Dosage: UNK
     Route: 065
  63. ABACAVIR SUCCINATE [Suspect]
     Active Substance: ABACAVIR SUCCINATE
     Dosage: UNK
     Route: 048
  64. ABACAVIR SUCCINATE [Suspect]
     Active Substance: ABACAVIR SUCCINATE
     Dosage: UNK
     Route: 065
  65. PREZISTA [Suspect]
     Active Substance: DARUNAVIR ETHANOLATE
     Indication: HIV infection
     Dosage: UNK
     Route: 048
  66. PREZISTA [Suspect]
     Active Substance: DARUNAVIR ETHANOLATE
     Dosage: UNK
     Route: 065
  67. PREZISTA [Suspect]
     Active Substance: DARUNAVIR ETHANOLATE
     Dosage: UNK
     Route: 048
  68. PREZISTA [Suspect]
     Active Substance: DARUNAVIR ETHANOLATE
     Dosage: UNK
     Route: 065
  69. PREZISTA [Suspect]
     Active Substance: DARUNAVIR ETHANOLATE
     Dosage: UNK
     Route: 048
  70. PREZISTA [Suspect]
     Active Substance: DARUNAVIR ETHANOLATE
     Dosage: UNK
     Route: 065
  71. PREZISTA [Suspect]
     Active Substance: DARUNAVIR ETHANOLATE
     Dosage: UNK
     Route: 048
  72. PREZISTA [Suspect]
     Active Substance: DARUNAVIR ETHANOLATE
     Dosage: UNK
     Route: 065
  73. PREZISTA [Suspect]
     Active Substance: DARUNAVIR ETHANOLATE
     Dosage: UNK
     Route: 048
  74. PREZISTA [Suspect]
     Active Substance: DARUNAVIR ETHANOLATE
     Dosage: UNK
     Route: 065
  75. PREZISTA [Suspect]
     Active Substance: DARUNAVIR ETHANOLATE
     Dosage: UNK
     Route: 048
  76. PREZISTA [Suspect]
     Active Substance: DARUNAVIR ETHANOLATE
     Dosage: UNK
     Route: 065
  77. NORVIR [Suspect]
     Active Substance: RITONAVIR
     Indication: HIV infection
     Dosage: DOSAGE FORM NOT SPECIFIED
     Route: 048
     Dates: end: 200802
  78. NORVIR [Suspect]
     Active Substance: RITONAVIR
     Indication: Antiretroviral therapy
     Dosage: UNK
     Route: 065
  79. NORVIR [Suspect]
     Active Substance: RITONAVIR
     Dosage: UNK
     Route: 065
  80. NORVIR [Suspect]
     Active Substance: RITONAVIR
     Dosage: UNK
     Route: 065
  81. NORVIR [Suspect]
     Active Substance: RITONAVIR
     Dosage: DOSAGE FORM NOT SPECIFIED
     Route: 048
     Dates: end: 200802
  82. NORVIR [Suspect]
     Active Substance: RITONAVIR
     Dosage: UNK
     Route: 065
  83. NORVIR [Suspect]
     Active Substance: RITONAVIR
     Dosage: UNK
     Route: 065
  84. NORVIR [Suspect]
     Active Substance: RITONAVIR
     Dosage: UNK
     Route: 065
  85. NORVIR [Suspect]
     Active Substance: RITONAVIR
     Dosage: DOSAGE FORM NOT SPECIFIED
     Route: 048
     Dates: end: 200802
  86. NORVIR [Suspect]
     Active Substance: RITONAVIR
     Dosage: UNK
     Route: 065
  87. NORVIR [Suspect]
     Active Substance: RITONAVIR
     Dosage: UNK
     Route: 065
  88. NORVIR [Suspect]
     Active Substance: RITONAVIR
     Dosage: UNK
     Route: 065
  89. NORVIR [Suspect]
     Active Substance: RITONAVIR
     Dosage: DOSAGE FORM NOT SPECIFIED
     Route: 048
     Dates: end: 200802
  90. NORVIR [Suspect]
     Active Substance: RITONAVIR
     Dosage: UNK
     Route: 065
  91. NORVIR [Suspect]
     Active Substance: RITONAVIR
     Dosage: UNK
     Route: 065
  92. NORVIR [Suspect]
     Active Substance: RITONAVIR
     Dosage: UNK
     Route: 065
  93. NORVIR [Suspect]
     Active Substance: RITONAVIR
     Dosage: DOSAGE FORM NOT SPECIFIED
     Route: 048
     Dates: end: 200802
  94. NORVIR [Suspect]
     Active Substance: RITONAVIR
     Dosage: UNK
     Route: 065
  95. NORVIR [Suspect]
     Active Substance: RITONAVIR
     Dosage: UNK
     Route: 065
  96. NORVIR [Suspect]
     Active Substance: RITONAVIR
     Dosage: UNK
     Route: 065
  97. NORVIR [Suspect]
     Active Substance: RITONAVIR
     Dosage: DOSAGE FORM NOT SPECIFIED
     Route: 048
     Dates: end: 200802
  98. NORVIR [Suspect]
     Active Substance: RITONAVIR
     Dosage: UNK
     Route: 065
  99. NORVIR [Suspect]
     Active Substance: RITONAVIR
     Dosage: UNK
     Route: 065
  100. NORVIR [Suspect]
     Active Substance: RITONAVIR
     Dosage: UNK
     Route: 065
  101. INTELENCE [Suspect]
     Active Substance: ETRAVIRINE
     Indication: HIV infection
     Dosage: UNK
     Route: 048
  102. INTELENCE [Suspect]
     Active Substance: ETRAVIRINE
     Dosage: UNK
     Route: 065
  103. INTELENCE [Suspect]
     Active Substance: ETRAVIRINE
     Dosage: UNK
     Route: 048
  104. INTELENCE [Suspect]
     Active Substance: ETRAVIRINE
     Dosage: UNK
     Route: 048
  105. INTELENCE [Suspect]
     Active Substance: ETRAVIRINE
     Dosage: UNK
     Route: 065
  106. INTELENCE [Suspect]
     Active Substance: ETRAVIRINE
     Dosage: UNK
     Route: 048
  107. INTELENCE [Suspect]
     Active Substance: ETRAVIRINE
     Dosage: UNK
     Route: 048
  108. INTELENCE [Suspect]
     Active Substance: ETRAVIRINE
     Dosage: UNK
     Route: 065
  109. INTELENCE [Suspect]
     Active Substance: ETRAVIRINE
     Dosage: UNK
     Route: 048
  110. INTELENCE [Suspect]
     Active Substance: ETRAVIRINE
     Dosage: UNK
     Route: 048
  111. INTELENCE [Suspect]
     Active Substance: ETRAVIRINE
     Dosage: UNK
     Route: 065
  112. INTELENCE [Suspect]
     Active Substance: ETRAVIRINE
     Dosage: UNK
     Route: 048
  113. INTELENCE [Suspect]
     Active Substance: ETRAVIRINE
     Dosage: UNK
     Route: 048
  114. INTELENCE [Suspect]
     Active Substance: ETRAVIRINE
     Dosage: UNK
     Route: 065
  115. INTELENCE [Suspect]
     Active Substance: ETRAVIRINE
     Dosage: UNK
     Route: 048
  116. INTELENCE [Suspect]
     Active Substance: ETRAVIRINE
     Dosage: UNK
     Route: 048
  117. INTELENCE [Suspect]
     Active Substance: ETRAVIRINE
     Dosage: UNK
     Route: 065
  118. INTELENCE [Suspect]
     Active Substance: ETRAVIRINE
     Dosage: UNK
     Route: 048
  119. RESCRIPTOR [Suspect]
     Active Substance: DELAVIRDINE MESYLATE
     Indication: HIV infection
     Dosage: UNK
     Route: 048
  120. RESCRIPTOR [Suspect]
     Active Substance: DELAVIRDINE MESYLATE
     Dosage: UNK
     Route: 065
  121. RESCRIPTOR [Suspect]
     Active Substance: DELAVIRDINE MESYLATE
     Dosage: UNK
     Route: 048
  122. RESCRIPTOR [Suspect]
     Active Substance: DELAVIRDINE MESYLATE
     Dosage: UNK
     Route: 065
  123. RESCRIPTOR [Suspect]
     Active Substance: DELAVIRDINE MESYLATE
     Dosage: UNK
     Route: 048
  124. RESCRIPTOR [Suspect]
     Active Substance: DELAVIRDINE MESYLATE
     Dosage: UNK
     Route: 065
  125. RESCRIPTOR [Suspect]
     Active Substance: DELAVIRDINE MESYLATE
     Dosage: UNK
     Route: 048
  126. RESCRIPTOR [Suspect]
     Active Substance: DELAVIRDINE MESYLATE
     Dosage: UNK
     Route: 065
  127. RESCRIPTOR [Suspect]
     Active Substance: DELAVIRDINE MESYLATE
     Dosage: UNK
     Route: 048
  128. RESCRIPTOR [Suspect]
     Active Substance: DELAVIRDINE MESYLATE
     Dosage: UNK
     Route: 065
  129. RESCRIPTOR [Suspect]
     Active Substance: DELAVIRDINE MESYLATE
     Dosage: UNK
     Route: 048
  130. RESCRIPTOR [Suspect]
     Active Substance: DELAVIRDINE MESYLATE
     Dosage: UNK
     Route: 065
  131. VIDEX EC [Suspect]
     Active Substance: DIDANOSINE
     Indication: HIV infection
     Dosage: CAPSULE ENTERIC COATED
     Route: 048
  132. VIDEX EC [Suspect]
     Active Substance: DIDANOSINE
     Dosage: UNK
     Route: 048
  133. VIDEX EC [Suspect]
     Active Substance: DIDANOSINE
     Dosage: CAPSULE ENTERIC COATED
     Route: 048
  134. VIDEX EC [Suspect]
     Active Substance: DIDANOSINE
     Dosage: UNK
     Route: 048
  135. VIDEX EC [Suspect]
     Active Substance: DIDANOSINE
     Dosage: CAPSULE ENTERIC COATED
     Route: 048
  136. VIDEX EC [Suspect]
     Active Substance: DIDANOSINE
     Dosage: UNK
     Route: 048
  137. VIDEX EC [Suspect]
     Active Substance: DIDANOSINE
     Dosage: CAPSULE ENTERIC COATED
     Route: 048
  138. VIDEX EC [Suspect]
     Active Substance: DIDANOSINE
     Dosage: UNK
     Route: 048
  139. VIDEX EC [Suspect]
     Active Substance: DIDANOSINE
     Dosage: CAPSULE ENTERIC COATED
     Route: 048
  140. VIDEX EC [Suspect]
     Active Substance: DIDANOSINE
     Dosage: UNK
     Route: 048
  141. VIDEX EC [Suspect]
     Active Substance: DIDANOSINE
     Dosage: CAPSULE ENTERIC COATED
     Route: 048
  142. VIDEX EC [Suspect]
     Active Substance: DIDANOSINE
     Dosage: UNK
     Route: 048
  143. LOPINAVIR\RITONAVIR [Suspect]
     Active Substance: LOPINAVIR\RITONAVIR
     Indication: HIV infection
     Dosage: UNK
     Route: 065
  144. LOPINAVIR\RITONAVIR [Suspect]
     Active Substance: LOPINAVIR\RITONAVIR
     Indication: Product used for unknown indication
     Dosage: UNK
     Route: 065
  145. LOPINAVIR\RITONAVIR [Suspect]
     Active Substance: LOPINAVIR\RITONAVIR
     Dosage: UNK
     Route: 065
  146. LOPINAVIR\RITONAVIR [Suspect]
     Active Substance: LOPINAVIR\RITONAVIR
     Dosage: UNK
     Route: 065
  147. LOPINAVIR\RITONAVIR [Suspect]
     Active Substance: LOPINAVIR\RITONAVIR
     Dosage: UNK
     Route: 065
  148. LOPINAVIR\RITONAVIR [Suspect]
     Active Substance: LOPINAVIR\RITONAVIR
     Dosage: UNK
     Route: 065
  149. NEVIRAPINE [Suspect]
     Active Substance: NEVIRAPINE
     Indication: HIV infection
     Dosage: UNK
     Route: 048
  150. NEVIRAPINE [Suspect]
     Active Substance: NEVIRAPINE
     Dosage: UNK
     Route: 065
  151. NEVIRAPINE [Suspect]
     Active Substance: NEVIRAPINE
     Dosage: UNK
     Route: 065
  152. NEVIRAPINE [Suspect]
     Active Substance: NEVIRAPINE
     Dosage: UNK
     Route: 048
  153. NEVIRAPINE [Suspect]
     Active Substance: NEVIRAPINE
     Dosage: UNK
     Route: 065
  154. NEVIRAPINE [Suspect]
     Active Substance: NEVIRAPINE
     Dosage: UNK
     Route: 065
  155. NEVIRAPINE [Suspect]
     Active Substance: NEVIRAPINE
     Dosage: UNK
     Route: 048
  156. NEVIRAPINE [Suspect]
     Active Substance: NEVIRAPINE
     Dosage: UNK
     Route: 065
  157. NEVIRAPINE [Suspect]
     Active Substance: NEVIRAPINE
     Dosage: UNK
     Route: 065
  158. NEVIRAPINE [Suspect]
     Active Substance: NEVIRAPINE
     Dosage: UNK
     Route: 048
  159. NEVIRAPINE [Suspect]
     Active Substance: NEVIRAPINE
     Dosage: UNK
     Route: 065
  160. NEVIRAPINE [Suspect]
     Active Substance: NEVIRAPINE
     Dosage: UNK
     Route: 065
  161. NEVIRAPINE [Suspect]
     Active Substance: NEVIRAPINE
     Dosage: UNK
     Route: 048
  162. NEVIRAPINE [Suspect]
     Active Substance: NEVIRAPINE
     Dosage: UNK
     Route: 065
  163. NEVIRAPINE [Suspect]
     Active Substance: NEVIRAPINE
     Dosage: UNK
     Route: 065
  164. NEVIRAPINE [Suspect]
     Active Substance: NEVIRAPINE
     Dosage: UNK
     Route: 048
  165. NEVIRAPINE [Suspect]
     Active Substance: NEVIRAPINE
     Dosage: UNK
     Route: 065
  166. NEVIRAPINE [Suspect]
     Active Substance: NEVIRAPINE
     Dosage: UNK
     Route: 065
  167. SAQUINAVIR [Suspect]
     Active Substance: SAQUINAVIR
     Indication: HIV infection
     Dosage: DOSAGR FORM: NOT SPECIFIED
     Route: 048
  168. SAQUINAVIR [Suspect]
     Active Substance: SAQUINAVIR
     Dosage: UNK
     Route: 065
  169. SAQUINAVIR [Suspect]
     Active Substance: SAQUINAVIR
     Dosage: DOSAGR FORM: NOT SPECIFIED
     Route: 048
  170. SAQUINAVIR [Suspect]
     Active Substance: SAQUINAVIR
     Dosage: UNK
     Route: 065
  171. SAQUINAVIR [Suspect]
     Active Substance: SAQUINAVIR
     Dosage: DOSAGR FORM: NOT SPECIFIED
     Route: 048
  172. SAQUINAVIR [Suspect]
     Active Substance: SAQUINAVIR
     Dosage: UNK
     Route: 065
  173. SAQUINAVIR [Suspect]
     Active Substance: SAQUINAVIR
     Dosage: DOSAGR FORM: NOT SPECIFIED
     Route: 048
  174. SAQUINAVIR [Suspect]
     Active Substance: SAQUINAVIR
     Dosage: UNK
     Route: 065
  175. SAQUINAVIR [Suspect]
     Active Substance: SAQUINAVIR
     Dosage: DOSAGR FORM: NOT SPECIFIED
     Route: 048
  176. SAQUINAVIR [Suspect]
     Active Substance: SAQUINAVIR
     Dosage: UNK
     Route: 065
  177. SAQUINAVIR [Suspect]
     Active Substance: SAQUINAVIR
     Dosage: DOSAGR FORM: NOT SPECIFIED
     Route: 048
  178. SAQUINAVIR [Suspect]
     Active Substance: SAQUINAVIR
     Dosage: UNK
     Route: 065
  179. ZERIT [Suspect]
     Active Substance: STAVUDINE
     Indication: HIV infection
     Dosage: UNK
     Route: 065
  180. ZERIT [Suspect]
     Active Substance: STAVUDINE
     Dosage: DOAGE FORM: NOT SPECIFIED
     Route: 048
  181. ZERIT [Suspect]
     Active Substance: STAVUDINE
     Dosage: UNK
     Route: 065
  182. ZERIT [Suspect]
     Active Substance: STAVUDINE
     Dosage: DOAGE FORM: NOT SPECIFIED
     Route: 048
  183. ZERIT [Suspect]
     Active Substance: STAVUDINE
     Dosage: UNK
     Route: 048
  184. ZERIT [Suspect]
     Active Substance: STAVUDINE
     Dosage: UNK
     Route: 065
  185. ZERIT [Suspect]
     Active Substance: STAVUDINE
     Dosage: DOAGE FORM: NOT SPECIFIED
     Route: 048
  186. ZERIT [Suspect]
     Active Substance: STAVUDINE
     Dosage: UNK
     Route: 065
  187. ZERIT [Suspect]
     Active Substance: STAVUDINE
     Dosage: DOAGE FORM: NOT SPECIFIED
     Route: 048
  188. ZERIT [Suspect]
     Active Substance: STAVUDINE
     Dosage: UNK
     Route: 048
  189. ZERIT [Suspect]
     Active Substance: STAVUDINE
     Dosage: UNK
     Route: 065
  190. ZERIT [Suspect]
     Active Substance: STAVUDINE
     Dosage: DOAGE FORM: NOT SPECIFIED
     Route: 048
  191. ZERIT [Suspect]
     Active Substance: STAVUDINE
     Dosage: UNK
     Route: 065
  192. ZERIT [Suspect]
     Active Substance: STAVUDINE
     Dosage: DOAGE FORM: NOT SPECIFIED
     Route: 048
  193. ZERIT [Suspect]
     Active Substance: STAVUDINE
     Dosage: UNK
     Route: 048
  194. ZERIT [Suspect]
     Active Substance: STAVUDINE
     Dosage: UNK
     Route: 065
  195. ZERIT [Suspect]
     Active Substance: STAVUDINE
     Dosage: DOAGE FORM: NOT SPECIFIED
     Route: 048
  196. ZERIT [Suspect]
     Active Substance: STAVUDINE
     Dosage: UNK
     Route: 065
  197. ZERIT [Suspect]
     Active Substance: STAVUDINE
     Dosage: DOAGE FORM: NOT SPECIFIED
     Route: 048
  198. ZERIT [Suspect]
     Active Substance: STAVUDINE
     Dosage: UNK
     Route: 048
  199. ZERIT [Suspect]
     Active Substance: STAVUDINE
     Dosage: UNK
     Route: 065
  200. ZERIT [Suspect]
     Active Substance: STAVUDINE
     Dosage: DOAGE FORM: NOT SPECIFIED
     Route: 048
  201. ZERIT [Suspect]
     Active Substance: STAVUDINE
     Dosage: UNK
     Route: 065
  202. ZERIT [Suspect]
     Active Substance: STAVUDINE
     Dosage: DOAGE FORM: NOT SPECIFIED
     Route: 048
  203. ZERIT [Suspect]
     Active Substance: STAVUDINE
     Dosage: UNK
     Route: 048
  204. ZERIT [Suspect]
     Active Substance: STAVUDINE
     Dosage: UNK
     Route: 065
  205. ZERIT [Suspect]
     Active Substance: STAVUDINE
     Dosage: DOAGE FORM: NOT SPECIFIED
     Route: 048
  206. ZERIT [Suspect]
     Active Substance: STAVUDINE
     Dosage: UNK
     Route: 065
  207. ZERIT [Suspect]
     Active Substance: STAVUDINE
     Dosage: DOAGE FORM: NOT SPECIFIED
     Route: 048
  208. ZERIT [Suspect]
     Active Substance: STAVUDINE
     Dosage: UNK
     Route: 048
  209. STAVUDINE [Suspect]
     Active Substance: STAVUDINE
     Indication: HIV infection
     Dosage: UNK
     Route: 048
  210. STAVUDINE [Suspect]
     Active Substance: STAVUDINE
     Dosage: UNK
     Route: 048
  211. STAVUDINE [Suspect]
     Active Substance: STAVUDINE
     Dosage: UNK
     Route: 048
  212. STAVUDINE [Suspect]
     Active Substance: STAVUDINE
     Dosage: UNK
     Route: 048
  213. STAVUDINE [Suspect]
     Active Substance: STAVUDINE
     Dosage: UNK
     Route: 048
  214. STAVUDINE [Suspect]
     Active Substance: STAVUDINE
     Dosage: UNK
     Route: 048
  215. STAVUDINE [Suspect]
     Active Substance: STAVUDINE
     Dosage: UNK
     Route: 048
  216. STAVUDINE [Suspect]
     Active Substance: STAVUDINE
     Dosage: UNK
     Route: 048
  217. STAVUDINE [Suspect]
     Active Substance: STAVUDINE
     Dosage: UNK
     Route: 048
  218. STAVUDINE [Suspect]
     Active Substance: STAVUDINE
     Dosage: UNK
     Route: 048
  219. STAVUDINE [Suspect]
     Active Substance: STAVUDINE
     Dosage: UNK
     Route: 048
  220. STAVUDINE [Suspect]
     Active Substance: STAVUDINE
     Dosage: UNK
     Route: 048
  221. VIREAD [Suspect]
     Active Substance: TENOFOVIR DISOPROXIL FUMARATE
     Indication: HIV infection
     Dosage: UNK
     Route: 048
  222. VIREAD [Suspect]
     Active Substance: TENOFOVIR DISOPROXIL FUMARATE
     Dosage: UNK
     Route: 048
  223. VIREAD [Suspect]
     Active Substance: TENOFOVIR DISOPROXIL FUMARATE
     Dosage: UNK
     Route: 048
  224. VIREAD [Suspect]
     Active Substance: TENOFOVIR DISOPROXIL FUMARATE
     Dosage: UNK
     Route: 048
  225. VIREAD [Suspect]
     Active Substance: TENOFOVIR DISOPROXIL FUMARATE
     Dosage: UNK
     Route: 048
  226. VIREAD [Suspect]
     Active Substance: TENOFOVIR DISOPROXIL FUMARATE
     Dosage: UNK
     Route: 048
  227. TENOFOVIR DISOPROXIL FUMARATE [Suspect]
     Active Substance: TENOFOVIR DISOPROXIL FUMARATE
     Indication: HIV infection
     Dosage: UNK
     Route: 048
  228. TENOFOVIR DISOPROXIL FUMARATE [Suspect]
     Active Substance: TENOFOVIR DISOPROXIL FUMARATE
     Indication: Product used for unknown indication
     Dosage: UNK
     Route: 065
  229. TENOFOVIR DISOPROXIL FUMARATE [Suspect]
     Active Substance: TENOFOVIR DISOPROXIL FUMARATE
     Dosage: UNK
     Route: 048
  230. TENOFOVIR DISOPROXIL FUMARATE [Suspect]
     Active Substance: TENOFOVIR DISOPROXIL FUMARATE
     Dosage: UNK
     Route: 065
  231. TENOFOVIR DISOPROXIL FUMARATE [Suspect]
     Active Substance: TENOFOVIR DISOPROXIL FUMARATE
     Dosage: UNK
     Route: 048
  232. TENOFOVIR DISOPROXIL FUMARATE [Suspect]
     Active Substance: TENOFOVIR DISOPROXIL FUMARATE
     Dosage: UNK
     Route: 065
  233. TENOFOVIR DISOPROXIL FUMARATE [Suspect]
     Active Substance: TENOFOVIR DISOPROXIL FUMARATE
     Dosage: UNK
     Route: 048
  234. TENOFOVIR DISOPROXIL FUMARATE [Suspect]
     Active Substance: TENOFOVIR DISOPROXIL FUMARATE
     Dosage: UNK
     Route: 065
  235. TENOFOVIR DISOPROXIL FUMARATE [Suspect]
     Active Substance: TENOFOVIR DISOPROXIL FUMARATE
     Dosage: UNK
     Route: 048
  236. TENOFOVIR DISOPROXIL FUMARATE [Suspect]
     Active Substance: TENOFOVIR DISOPROXIL FUMARATE
     Dosage: UNK
     Route: 065
  237. TENOFOVIR DISOPROXIL FUMARATE [Suspect]
     Active Substance: TENOFOVIR DISOPROXIL FUMARATE
     Dosage: UNK
     Route: 048
  238. TENOFOVIR DISOPROXIL FUMARATE [Suspect]
     Active Substance: TENOFOVIR DISOPROXIL FUMARATE
     Dosage: UNK
     Route: 065
  239. ZIDOVUDINE [Suspect]
     Active Substance: ZIDOVUDINE
     Indication: HIV infection
     Dosage: DOSAGE FORM: NOT SPECIFIED
     Route: 048
  240. ZIDOVUDINE [Suspect]
     Active Substance: ZIDOVUDINE
     Dosage: UNK
     Route: 065
  241. ZIDOVUDINE [Suspect]
     Active Substance: ZIDOVUDINE
     Dosage: DOSAGE FORM: NOT SPECIFIED
     Route: 048
  242. ZIDOVUDINE [Suspect]
     Active Substance: ZIDOVUDINE
     Dosage: UNK
     Route: 065
  243. ZIDOVUDINE [Suspect]
     Active Substance: ZIDOVUDINE
     Dosage: DOSAGE FORM: NOT SPECIFIED
     Route: 048
  244. ZIDOVUDINE [Suspect]
     Active Substance: ZIDOVUDINE
     Dosage: UNK
     Route: 065
  245. ZIDOVUDINE [Suspect]
     Active Substance: ZIDOVUDINE
     Dosage: DOSAGE FORM: NOT SPECIFIED
     Route: 048
  246. ZIDOVUDINE [Suspect]
     Active Substance: ZIDOVUDINE
     Dosage: UNK
     Route: 065
  247. ZIDOVUDINE [Suspect]
     Active Substance: ZIDOVUDINE
     Dosage: DOSAGE FORM: NOT SPECIFIED
     Route: 048
  248. ZIDOVUDINE [Suspect]
     Active Substance: ZIDOVUDINE
     Dosage: UNK
     Route: 065
  249. ZIDOVUDINE [Suspect]
     Active Substance: ZIDOVUDINE
     Dosage: DOSAGE FORM: NOT SPECIFIED
     Route: 048
  250. ZIDOVUDINE [Suspect]
     Active Substance: ZIDOVUDINE
     Dosage: UNK
     Route: 065
  251. KALETRA [Suspect]
     Active Substance: LOPINAVIR\RITONAVIR
     Indication: HIV infection
     Dosage: UNK
     Route: 065
  252. KALETRA [Suspect]
     Active Substance: LOPINAVIR\RITONAVIR
     Indication: Antiretroviral therapy
     Dosage: DOSAGE FORM: NOT SPECIFIED
     Route: 048
  253. KALETRA [Suspect]
     Active Substance: LOPINAVIR\RITONAVIR
     Dosage: UNK
     Route: 065
  254. KALETRA [Suspect]
     Active Substance: LOPINAVIR\RITONAVIR
     Dosage: DOSAGE FORM: NOT SPECIFIED
     Route: 048
  255. KALETRA [Suspect]
     Active Substance: LOPINAVIR\RITONAVIR
     Dosage: UNK
     Route: 065
  256. KALETRA [Suspect]
     Active Substance: LOPINAVIR\RITONAVIR
     Dosage: DOSAGE FORM: NOT SPECIFIED
     Route: 048
  257. KALETRA [Suspect]
     Active Substance: LOPINAVIR\RITONAVIR
     Dosage: UNK
     Route: 065
  258. KALETRA [Suspect]
     Active Substance: LOPINAVIR\RITONAVIR
     Dosage: DOSAGE FORM: NOT SPECIFIED
     Route: 048
  259. KALETRA [Suspect]
     Active Substance: LOPINAVIR\RITONAVIR
     Dosage: UNK
     Route: 065
  260. KALETRA [Suspect]
     Active Substance: LOPINAVIR\RITONAVIR
     Dosage: DOSAGE FORM: NOT SPECIFIED
     Route: 048
  261. KALETRA [Suspect]
     Active Substance: LOPINAVIR\RITONAVIR
     Dosage: UNK
     Route: 065
  262. KALETRA [Suspect]
     Active Substance: LOPINAVIR\RITONAVIR
     Dosage: DOSAGE FORM: NOT SPECIFIED
     Route: 048
  263. ENFUVIRTIDE [Suspect]
     Active Substance: ENFUVIRTIDE
     Indication: HIV infection
     Dosage: UNK
     Route: 058
  264. ENFUVIRTIDE [Suspect]
     Active Substance: ENFUVIRTIDE
     Indication: Product used for unknown indication
     Dosage: UNK
     Route: 048
  265. ENFUVIRTIDE [Suspect]
     Active Substance: ENFUVIRTIDE
     Dosage: FREQUENCY: TOTAL
     Route: 058
  266. ENFUVIRTIDE [Suspect]
     Active Substance: ENFUVIRTIDE
     Dosage: UNK
     Route: 058
  267. ENFUVIRTIDE [Suspect]
     Active Substance: ENFUVIRTIDE
     Dosage: UNK
     Route: 048
  268. ENFUVIRTIDE [Suspect]
     Active Substance: ENFUVIRTIDE
     Dosage: FREQUENCY: TOTAL
     Route: 058
  269. ENFUVIRTIDE [Suspect]
     Active Substance: ENFUVIRTIDE
     Dosage: UNK
     Route: 058
  270. ENFUVIRTIDE [Suspect]
     Active Substance: ENFUVIRTIDE
     Dosage: UNK
     Route: 048
  271. ENFUVIRTIDE [Suspect]
     Active Substance: ENFUVIRTIDE
     Dosage: FREQUENCY: TOTAL
     Route: 058
  272. ENFUVIRTIDE [Suspect]
     Active Substance: ENFUVIRTIDE
     Dosage: UNK
     Route: 058
  273. ENFUVIRTIDE [Suspect]
     Active Substance: ENFUVIRTIDE
     Dosage: UNK
     Route: 048
  274. ENFUVIRTIDE [Suspect]
     Active Substance: ENFUVIRTIDE
     Dosage: FREQUENCY: TOTAL
     Route: 058
  275. ENFUVIRTIDE [Suspect]
     Active Substance: ENFUVIRTIDE
     Dosage: UNK
     Route: 058
  276. ENFUVIRTIDE [Suspect]
     Active Substance: ENFUVIRTIDE
     Dosage: UNK
     Route: 048
  277. ENFUVIRTIDE [Suspect]
     Active Substance: ENFUVIRTIDE
     Dosage: FREQUENCY: TOTAL
     Route: 058
  278. ENFUVIRTIDE [Suspect]
     Active Substance: ENFUVIRTIDE
     Dosage: UNK
     Route: 058
  279. ENFUVIRTIDE [Suspect]
     Active Substance: ENFUVIRTIDE
     Dosage: UNK
     Route: 048
  280. ENFUVIRTIDE [Suspect]
     Active Substance: ENFUVIRTIDE
     Dosage: FREQUENCY: TOTAL
     Route: 058
  281. ABACAVIR SULFATE [Suspect]
     Active Substance: ABACAVIR SULFATE
     Indication: HIV infection
     Dosage: UNK
     Route: 065
  282. ABACAVIR SULFATE [Suspect]
     Active Substance: ABACAVIR SULFATE
     Indication: Antiretroviral therapy
     Dosage: UNK
     Route: 048
  283. ABACAVIR SULFATE [Suspect]
     Active Substance: ABACAVIR SULFATE
     Indication: Product used for unknown indication
     Dosage: UNK
     Route: 065
  284. ABACAVIR SULFATE [Suspect]
     Active Substance: ABACAVIR SULFATE
     Dosage: UNK
     Route: 048
  285. ABACAVIR SULFATE [Suspect]
     Active Substance: ABACAVIR SULFATE
     Dosage: UNK
     Route: 065
  286. ABACAVIR SULFATE [Suspect]
     Active Substance: ABACAVIR SULFATE
     Dosage: UNK
     Route: 065
  287. ABACAVIR SULFATE [Suspect]
     Active Substance: ABACAVIR SULFATE
     Dosage: UNK
     Route: 065
  288. ABACAVIR SULFATE [Suspect]
     Active Substance: ABACAVIR SULFATE
     Dosage: UNK
     Route: 048
  289. ABACAVIR SULFATE [Suspect]
     Active Substance: ABACAVIR SULFATE
     Dosage: UNK
     Route: 065
  290. ABACAVIR SULFATE [Suspect]
     Active Substance: ABACAVIR SULFATE
     Dosage: UNK
     Route: 048
  291. ABACAVIR SULFATE [Suspect]
     Active Substance: ABACAVIR SULFATE
     Dosage: UNK
     Route: 065
  292. ABACAVIR SULFATE [Suspect]
     Active Substance: ABACAVIR SULFATE
     Dosage: UNK
     Route: 065
  293. ABACAVIR SULFATE [Suspect]
     Active Substance: ABACAVIR SULFATE
     Dosage: UNK
     Route: 065
  294. ABACAVIR SULFATE [Suspect]
     Active Substance: ABACAVIR SULFATE
     Dosage: UNK
     Route: 048
  295. ABACAVIR SULFATE [Suspect]
     Active Substance: ABACAVIR SULFATE
     Dosage: UNK
     Route: 065
  296. ABACAVIR SULFATE [Suspect]
     Active Substance: ABACAVIR SULFATE
     Dosage: UNK
     Route: 048
  297. ABACAVIR SULFATE [Suspect]
     Active Substance: ABACAVIR SULFATE
     Dosage: UNK
     Route: 065
  298. ABACAVIR SULFATE [Suspect]
     Active Substance: ABACAVIR SULFATE
     Dosage: UNK
     Route: 065
  299. ABACAVIR SULFATE [Suspect]
     Active Substance: ABACAVIR SULFATE
     Dosage: UNK
     Route: 065
  300. ABACAVIR SULFATE [Suspect]
     Active Substance: ABACAVIR SULFATE
     Dosage: UNK
     Route: 048
  301. ABACAVIR SULFATE [Suspect]
     Active Substance: ABACAVIR SULFATE
     Dosage: UNK
     Route: 065
  302. ABACAVIR SULFATE [Suspect]
     Active Substance: ABACAVIR SULFATE
     Dosage: UNK
     Route: 048
  303. ABACAVIR SULFATE [Suspect]
     Active Substance: ABACAVIR SULFATE
     Dosage: UNK
     Route: 065
  304. ABACAVIR SULFATE [Suspect]
     Active Substance: ABACAVIR SULFATE
     Dosage: UNK
     Route: 065
  305. ABACAVIR SULFATE [Suspect]
     Active Substance: ABACAVIR SULFATE
     Dosage: UNK
     Route: 065
  306. ABACAVIR SULFATE [Suspect]
     Active Substance: ABACAVIR SULFATE
     Dosage: UNK
     Route: 048
  307. ABACAVIR SULFATE [Suspect]
     Active Substance: ABACAVIR SULFATE
     Dosage: UNK
     Route: 065
  308. ABACAVIR SULFATE [Suspect]
     Active Substance: ABACAVIR SULFATE
     Dosage: UNK
     Route: 048
  309. ABACAVIR SULFATE [Suspect]
     Active Substance: ABACAVIR SULFATE
     Dosage: UNK
     Route: 065
  310. ABACAVIR SULFATE [Suspect]
     Active Substance: ABACAVIR SULFATE
     Dosage: UNK
     Route: 065
  311. ABACAVIR SULFATE [Suspect]
     Active Substance: ABACAVIR SULFATE
     Dosage: UNK
     Route: 065
  312. ABACAVIR SULFATE [Suspect]
     Active Substance: ABACAVIR SULFATE
     Dosage: UNK
     Route: 048
  313. ABACAVIR SULFATE [Suspect]
     Active Substance: ABACAVIR SULFATE
     Dosage: UNK
     Route: 065
  314. ABACAVIR SULFATE [Suspect]
     Active Substance: ABACAVIR SULFATE
     Dosage: UNK
     Route: 048
  315. ABACAVIR SULFATE [Suspect]
     Active Substance: ABACAVIR SULFATE
     Dosage: UNK
     Route: 065
  316. ABACAVIR SULFATE [Suspect]
     Active Substance: ABACAVIR SULFATE
     Dosage: UNK
     Route: 065
  317. DARUNAVIR [Suspect]
     Active Substance: DARUNAVIR
     Indication: HIV infection
     Dosage: UNK
     Route: 065
  318. DARUNAVIR [Suspect]
     Active Substance: DARUNAVIR
     Indication: Antiretroviral therapy
     Dosage: UNK
     Route: 065
  319. DARUNAVIR [Suspect]
     Active Substance: DARUNAVIR
     Dosage: UNK
     Route: 048
  320. DARUNAVIR [Suspect]
     Active Substance: DARUNAVIR
     Dosage: UNK
     Route: 065
  321. DARUNAVIR [Suspect]
     Active Substance: DARUNAVIR
     Dosage: UNK
     Route: 065
  322. DARUNAVIR [Suspect]
     Active Substance: DARUNAVIR
     Dosage: UNK
     Route: 048
  323. DARUNAVIR [Suspect]
     Active Substance: DARUNAVIR
     Dosage: UNK
     Route: 065
  324. DARUNAVIR [Suspect]
     Active Substance: DARUNAVIR
     Dosage: UNK
     Route: 065
  325. DARUNAVIR [Suspect]
     Active Substance: DARUNAVIR
     Dosage: UNK
     Route: 048
  326. DARUNAVIR [Suspect]
     Active Substance: DARUNAVIR
     Dosage: UNK
     Route: 065
  327. DARUNAVIR [Suspect]
     Active Substance: DARUNAVIR
     Dosage: UNK
     Route: 065
  328. DARUNAVIR [Suspect]
     Active Substance: DARUNAVIR
     Dosage: UNK
     Route: 048
  329. DARUNAVIR [Suspect]
     Active Substance: DARUNAVIR
     Dosage: UNK
     Route: 065
  330. DARUNAVIR [Suspect]
     Active Substance: DARUNAVIR
     Dosage: UNK
     Route: 065
  331. DARUNAVIR [Suspect]
     Active Substance: DARUNAVIR
     Dosage: UNK
     Route: 048
  332. DARUNAVIR [Suspect]
     Active Substance: DARUNAVIR
     Dosage: UNK
     Route: 065
  333. DARUNAVIR [Suspect]
     Active Substance: DARUNAVIR
     Dosage: UNK
     Route: 065
  334. DARUNAVIR [Suspect]
     Active Substance: DARUNAVIR
     Dosage: UNK
     Route: 048
  335. DELAVIRDINE MESYLATE [Suspect]
     Active Substance: DELAVIRDINE MESYLATE
     Indication: HIV infection
     Dosage: UNK
     Route: 048
  336. DELAVIRDINE MESYLATE [Suspect]
     Active Substance: DELAVIRDINE MESYLATE
     Indication: Product used for unknown indication
     Dosage: UNK
     Route: 065
  337. DELAVIRDINE MESYLATE [Suspect]
     Active Substance: DELAVIRDINE MESYLATE
     Dosage: UNK
     Route: 048
  338. DELAVIRDINE MESYLATE [Suspect]
     Active Substance: DELAVIRDINE MESYLATE
     Dosage: UNK
     Route: 048
  339. DELAVIRDINE MESYLATE [Suspect]
     Active Substance: DELAVIRDINE MESYLATE
     Dosage: UNK
     Route: 065
  340. DELAVIRDINE MESYLATE [Suspect]
     Active Substance: DELAVIRDINE MESYLATE
     Dosage: UNK
     Route: 048
  341. DELAVIRDINE MESYLATE [Suspect]
     Active Substance: DELAVIRDINE MESYLATE
     Dosage: UNK
     Route: 048
  342. DELAVIRDINE MESYLATE [Suspect]
     Active Substance: DELAVIRDINE MESYLATE
     Dosage: UNK
     Route: 065
  343. DELAVIRDINE MESYLATE [Suspect]
     Active Substance: DELAVIRDINE MESYLATE
     Dosage: UNK
     Route: 048
  344. DELAVIRDINE MESYLATE [Suspect]
     Active Substance: DELAVIRDINE MESYLATE
     Dosage: UNK
     Route: 048
  345. DELAVIRDINE MESYLATE [Suspect]
     Active Substance: DELAVIRDINE MESYLATE
     Dosage: UNK
     Route: 065
  346. DELAVIRDINE MESYLATE [Suspect]
     Active Substance: DELAVIRDINE MESYLATE
     Dosage: UNK
     Route: 048
  347. DELAVIRDINE MESYLATE [Suspect]
     Active Substance: DELAVIRDINE MESYLATE
     Dosage: UNK
     Route: 048
  348. DELAVIRDINE MESYLATE [Suspect]
     Active Substance: DELAVIRDINE MESYLATE
     Dosage: UNK
     Route: 065
  349. DELAVIRDINE MESYLATE [Suspect]
     Active Substance: DELAVIRDINE MESYLATE
     Dosage: UNK
     Route: 048
  350. DELAVIRDINE MESYLATE [Suspect]
     Active Substance: DELAVIRDINE MESYLATE
     Dosage: UNK
     Route: 048
  351. DELAVIRDINE MESYLATE [Suspect]
     Active Substance: DELAVIRDINE MESYLATE
     Dosage: UNK
     Route: 065
  352. DELAVIRDINE MESYLATE [Suspect]
     Active Substance: DELAVIRDINE MESYLATE
     Dosage: UNK
     Route: 048
  353. DIDANOSINE [Suspect]
     Active Substance: DIDANOSINE
     Indication: HIV infection
     Dosage: DOSAGE FORM: NOT SPECIFIED.
     Route: 065
  354. DIDANOSINE [Suspect]
     Active Substance: DIDANOSINE
     Dosage: DOSAGE FORM: NOT SPECIFIED.
     Route: 048
  355. DIDANOSINE [Suspect]
     Active Substance: DIDANOSINE
     Dosage: UNK
     Route: 065
  356. DIDANOSINE [Suspect]
     Active Substance: DIDANOSINE
     Dosage: DOSAGE FORM: NOT SPECIFIED.
     Route: 065
  357. DIDANOSINE [Suspect]
     Active Substance: DIDANOSINE
     Dosage: DOSAGE FORM: NOT SPECIFIED.
     Route: 048
  358. DIDANOSINE [Suspect]
     Active Substance: DIDANOSINE
     Dosage: UNK
     Route: 065
  359. DIDANOSINE [Suspect]
     Active Substance: DIDANOSINE
     Dosage: DOSAGE FORM: NOT SPECIFIED.
     Route: 065
  360. DIDANOSINE [Suspect]
     Active Substance: DIDANOSINE
     Dosage: DOSAGE FORM: NOT SPECIFIED.
     Route: 048
  361. DIDANOSINE [Suspect]
     Active Substance: DIDANOSINE
     Dosage: UNK
     Route: 065
  362. DIDANOSINE [Suspect]
     Active Substance: DIDANOSINE
     Dosage: DOSAGE FORM: NOT SPECIFIED.
     Route: 065
  363. DIDANOSINE [Suspect]
     Active Substance: DIDANOSINE
     Dosage: DOSAGE FORM: NOT SPECIFIED.
     Route: 048
  364. DIDANOSINE [Suspect]
     Active Substance: DIDANOSINE
     Dosage: UNK
     Route: 065
  365. DIDANOSINE [Suspect]
     Active Substance: DIDANOSINE
     Dosage: DOSAGE FORM: NOT SPECIFIED.
     Route: 065
  366. DIDANOSINE [Suspect]
     Active Substance: DIDANOSINE
     Dosage: DOSAGE FORM: NOT SPECIFIED.
     Route: 048
  367. DIDANOSINE [Suspect]
     Active Substance: DIDANOSINE
     Dosage: UNK
     Route: 065
  368. DIDANOSINE [Suspect]
     Active Substance: DIDANOSINE
     Dosage: DOSAGE FORM: NOT SPECIFIED.
     Route: 065
  369. DIDANOSINE [Suspect]
     Active Substance: DIDANOSINE
     Dosage: DOSAGE FORM: NOT SPECIFIED.
     Route: 048
  370. DIDANOSINE [Suspect]
     Active Substance: DIDANOSINE
     Dosage: UNK
     Route: 065
  371. ETRAVIRINE [Suspect]
     Active Substance: ETRAVIRINE
     Indication: HIV infection
     Dosage: UNK
     Route: 048
  372. ETRAVIRINE [Suspect]
     Active Substance: ETRAVIRINE
     Indication: Antiretroviral therapy
     Dosage: UNK
     Route: 065
  373. ETRAVIRINE [Suspect]
     Active Substance: ETRAVIRINE
     Dosage: UNK
     Route: 048
  374. ETRAVIRINE [Suspect]
     Active Substance: ETRAVIRINE
     Dosage: UNK
     Route: 065
  375. ETRAVIRINE [Suspect]
     Active Substance: ETRAVIRINE
     Dosage: UNK
     Route: 048
  376. ETRAVIRINE [Suspect]
     Active Substance: ETRAVIRINE
     Dosage: UNK
     Route: 065
  377. ETRAVIRINE [Suspect]
     Active Substance: ETRAVIRINE
     Dosage: UNK
     Route: 048
  378. ETRAVIRINE [Suspect]
     Active Substance: ETRAVIRINE
     Dosage: UNK
     Route: 065
  379. ETRAVIRINE [Suspect]
     Active Substance: ETRAVIRINE
     Dosage: UNK
     Route: 048
  380. ETRAVIRINE [Suspect]
     Active Substance: ETRAVIRINE
     Dosage: UNK
     Route: 065
  381. ETRAVIRINE [Suspect]
     Active Substance: ETRAVIRINE
     Dosage: UNK
     Route: 048
  382. ETRAVIRINE [Suspect]
     Active Substance: ETRAVIRINE
     Dosage: UNK
     Route: 065
  383. INDINAVIR SULFATE [Suspect]
     Active Substance: INDINAVIR SULFATE
     Indication: HIV infection
     Dosage: UNK
     Route: 048
  384. INDINAVIR SULFATE [Suspect]
     Active Substance: INDINAVIR SULFATE
     Dosage: UNK
     Route: 048
  385. INDINAVIR SULFATE [Suspect]
     Active Substance: INDINAVIR SULFATE
     Dosage: UNK
     Route: 048
  386. INDINAVIR SULFATE [Suspect]
     Active Substance: INDINAVIR SULFATE
     Dosage: UNK
     Route: 048
  387. INDINAVIR SULFATE [Suspect]
     Active Substance: INDINAVIR SULFATE
     Dosage: UNK
     Route: 048
  388. INDINAVIR SULFATE [Suspect]
     Active Substance: INDINAVIR SULFATE
     Dosage: UNK
     Route: 048
  389. INDINAVIR SULFATE [Suspect]
     Active Substance: INDINAVIR SULFATE
     Indication: HIV infection
     Dosage: UNK
     Route: 065
  390. INDINAVIR SULFATE [Suspect]
     Active Substance: INDINAVIR SULFATE
     Dosage: UNK
     Route: 048
  391. INDINAVIR SULFATE [Suspect]
     Active Substance: INDINAVIR SULFATE
     Dosage: UNK
     Route: 048
  392. INDINAVIR SULFATE [Suspect]
     Active Substance: INDINAVIR SULFATE
     Dosage: UNK
     Route: 065
  393. INDINAVIR SULFATE [Suspect]
     Active Substance: INDINAVIR SULFATE
     Dosage: UNK
     Route: 048
  394. INDINAVIR SULFATE [Suspect]
     Active Substance: INDINAVIR SULFATE
     Dosage: UNK
     Route: 048
  395. INDINAVIR SULFATE [Suspect]
     Active Substance: INDINAVIR SULFATE
     Dosage: UNK
     Route: 065
  396. INDINAVIR SULFATE [Suspect]
     Active Substance: INDINAVIR SULFATE
     Dosage: UNK
     Route: 048
  397. INDINAVIR SULFATE [Suspect]
     Active Substance: INDINAVIR SULFATE
     Dosage: UNK
     Route: 048
  398. INDINAVIR SULFATE [Suspect]
     Active Substance: INDINAVIR SULFATE
     Dosage: UNK
     Route: 065
  399. INDINAVIR SULFATE [Suspect]
     Active Substance: INDINAVIR SULFATE
     Dosage: UNK
     Route: 048
  400. INDINAVIR SULFATE [Suspect]
     Active Substance: INDINAVIR SULFATE
     Dosage: UNK
     Route: 048
  401. INDINAVIR SULFATE [Suspect]
     Active Substance: INDINAVIR SULFATE
     Dosage: UNK
     Route: 065
  402. INDINAVIR SULFATE [Suspect]
     Active Substance: INDINAVIR SULFATE
     Dosage: UNK
     Route: 048
  403. INDINAVIR SULFATE [Suspect]
     Active Substance: INDINAVIR SULFATE
     Dosage: UNK
     Route: 048
  404. INDINAVIR SULFATE [Suspect]
     Active Substance: INDINAVIR SULFATE
     Dosage: UNK
     Route: 065
  405. INDINAVIR SULFATE [Suspect]
     Active Substance: INDINAVIR SULFATE
     Dosage: UNK
     Route: 048
  406. INDINAVIR SULFATE [Suspect]
     Active Substance: INDINAVIR SULFATE
     Dosage: UNK
     Route: 048
  407. NELFINAVIR MESYLATE [Suspect]
     Active Substance: NELFINAVIR MESYLATE
     Indication: HIV infection
     Dosage: 1 EVERY 9 MINUTES
     Route: 065
  408. NELFINAVIR MESYLATE [Suspect]
     Active Substance: NELFINAVIR MESYLATE
     Dosage: UNK
     Route: 048
  409. NELFINAVIR MESYLATE [Suspect]
     Active Substance: NELFINAVIR MESYLATE
     Dosage: UNK
     Route: 048
  410. NELFINAVIR MESYLATE [Suspect]
     Active Substance: NELFINAVIR MESYLATE
     Dosage: 1 EVERY 9 MINUTES
     Route: 065
  411. NELFINAVIR MESYLATE [Suspect]
     Active Substance: NELFINAVIR MESYLATE
     Dosage: UNK
     Route: 048
  412. NELFINAVIR MESYLATE [Suspect]
     Active Substance: NELFINAVIR MESYLATE
     Dosage: UNK
     Route: 048
  413. NELFINAVIR MESYLATE [Suspect]
     Active Substance: NELFINAVIR MESYLATE
     Dosage: 1 EVERY 9 MINUTES
     Route: 065
  414. NELFINAVIR MESYLATE [Suspect]
     Active Substance: NELFINAVIR MESYLATE
     Dosage: UNK
     Route: 048
  415. NELFINAVIR MESYLATE [Suspect]
     Active Substance: NELFINAVIR MESYLATE
     Dosage: UNK
     Route: 048
  416. NELFINAVIR MESYLATE [Suspect]
     Active Substance: NELFINAVIR MESYLATE
     Dosage: 1 EVERY 9 MINUTES
     Route: 065
  417. NELFINAVIR MESYLATE [Suspect]
     Active Substance: NELFINAVIR MESYLATE
     Dosage: UNK
     Route: 048
  418. NELFINAVIR MESYLATE [Suspect]
     Active Substance: NELFINAVIR MESYLATE
     Dosage: UNK
     Route: 048
  419. NELFINAVIR MESYLATE [Suspect]
     Active Substance: NELFINAVIR MESYLATE
     Dosage: 1 EVERY 9 MINUTES
     Route: 065
  420. NELFINAVIR MESYLATE [Suspect]
     Active Substance: NELFINAVIR MESYLATE
     Dosage: UNK
     Route: 048
  421. NELFINAVIR MESYLATE [Suspect]
     Active Substance: NELFINAVIR MESYLATE
     Dosage: UNK
     Route: 048
  422. NELFINAVIR MESYLATE [Suspect]
     Active Substance: NELFINAVIR MESYLATE
     Dosage: 1 EVERY 9 MINUTES
     Route: 065
  423. NELFINAVIR MESYLATE [Suspect]
     Active Substance: NELFINAVIR MESYLATE
     Dosage: UNK
     Route: 048
  424. NELFINAVIR MESYLATE [Suspect]
     Active Substance: NELFINAVIR MESYLATE
     Dosage: UNK
     Route: 048
  425. RITONAVIR [Suspect]
     Active Substance: RITONAVIR
     Indication: HIV infection
     Dosage: DOSAGE FORM NOT SPECIFIED
     Route: 065
  426. RITONAVIR [Suspect]
     Active Substance: RITONAVIR
     Dosage: UNK
     Route: 065
  427. RITONAVIR [Suspect]
     Active Substance: RITONAVIR
     Dosage: DOSAGE FORM NOT SPECIFIED
     Route: 065
  428. RITONAVIR [Suspect]
     Active Substance: RITONAVIR
     Dosage: UNK
     Route: 065
  429. RITONAVIR [Suspect]
     Active Substance: RITONAVIR
     Dosage: DOSAGE FORM NOT SPECIFIED
     Route: 065
  430. RITONAVIR [Suspect]
     Active Substance: RITONAVIR
     Dosage: UNK
     Route: 065
  431. RITONAVIR [Suspect]
     Active Substance: RITONAVIR
     Dosage: DOSAGE FORM NOT SPECIFIED
     Route: 065
  432. RITONAVIR [Suspect]
     Active Substance: RITONAVIR
     Dosage: UNK
     Route: 065
  433. RITONAVIR [Suspect]
     Active Substance: RITONAVIR
     Dosage: DOSAGE FORM NOT SPECIFIED
     Route: 065
  434. RITONAVIR [Suspect]
     Active Substance: RITONAVIR
     Dosage: UNK
     Route: 065
  435. RITONAVIR [Suspect]
     Active Substance: RITONAVIR
     Dosage: DOSAGE FORM NOT SPECIFIED
     Route: 065
  436. RITONAVIR [Suspect]
     Active Substance: RITONAVIR
     Dosage: UNK
     Route: 065
  437. VIRAMUNE [Suspect]
     Active Substance: NEVIRAPINE
     Indication: HIV infection
     Dosage: UNK
     Route: 048
  438. VIRAMUNE [Suspect]
     Active Substance: NEVIRAPINE
     Dosage: UNK
     Route: 065
  439. VIRAMUNE [Suspect]
     Active Substance: NEVIRAPINE
     Dosage: UNK
     Route: 048
  440. VIRAMUNE [Suspect]
     Active Substance: NEVIRAPINE
     Dosage: UNK
     Route: 065
  441. VIRAMUNE [Suspect]
     Active Substance: NEVIRAPINE
     Dosage: UNK
     Route: 048
  442. VIRAMUNE [Suspect]
     Active Substance: NEVIRAPINE
     Dosage: UNK
     Route: 065
  443. VIRAMUNE [Suspect]
     Active Substance: NEVIRAPINE
     Dosage: UNK
     Route: 048
  444. VIRAMUNE [Suspect]
     Active Substance: NEVIRAPINE
     Dosage: UNK
     Route: 065
  445. VIRAMUNE [Suspect]
     Active Substance: NEVIRAPINE
     Dosage: UNK
     Route: 048
  446. VIRAMUNE [Suspect]
     Active Substance: NEVIRAPINE
     Dosage: UNK
     Route: 065
  447. VIRAMUNE [Suspect]
     Active Substance: NEVIRAPINE
     Dosage: UNK
     Route: 048
  448. VIRAMUNE [Suspect]
     Active Substance: NEVIRAPINE
     Dosage: UNK
     Route: 065
  449. VIRACEPT [Suspect]
     Active Substance: NELFINAVIR MESYLATE
     Indication: HIV infection
     Dosage: UNK
     Route: 065
  450. VIRACEPT [Suspect]
     Active Substance: NELFINAVIR MESYLATE
     Dosage: UNK
     Route: 065
  451. VIRACEPT [Suspect]
     Active Substance: NELFINAVIR MESYLATE
     Dosage: UNK
     Route: 065
  452. VIRACEPT [Suspect]
     Active Substance: NELFINAVIR MESYLATE
     Dosage: UNK
     Route: 065
  453. VIRACEPT [Suspect]
     Active Substance: NELFINAVIR MESYLATE
     Dosage: UNK
     Route: 065
  454. VIRACEPT [Suspect]
     Active Substance: NELFINAVIR MESYLATE
     Dosage: UNK
     Route: 065
  455. LOPINAVIR [Suspect]
     Active Substance: LOPINAVIR
     Indication: HIV infection
     Dosage: DOSAGE FORM: NOT SPECIFIED
     Route: 065
  456. LOPINAVIR [Suspect]
     Active Substance: LOPINAVIR
     Dosage: DOSAGE FORM: NOT SPECIFIED
     Route: 065
  457. LOPINAVIR [Suspect]
     Active Substance: LOPINAVIR
     Dosage: DOSAGE FORM: NOT SPECIFIED
     Route: 065
  458. LOPINAVIR [Suspect]
     Active Substance: LOPINAVIR
     Dosage: DOSAGE FORM: NOT SPECIFIED
     Route: 065
  459. LOPINAVIR [Suspect]
     Active Substance: LOPINAVIR
     Dosage: DOSAGE FORM: NOT SPECIFIED
     Route: 065
  460. LOPINAVIR [Suspect]
     Active Substance: LOPINAVIR
     Dosage: DOSAGE FORM: NOT SPECIFIED
     Route: 065
  461. EFAVIRENZ [Suspect]
     Active Substance: EFAVIRENZ
     Indication: HIV infection
     Dosage: DOSAGE FORM: NOT SPECIFIED.
     Route: 048
  462. EFAVIRENZ [Suspect]
     Active Substance: EFAVIRENZ
     Dosage: UNK
     Route: 065
  463. EFAVIRENZ [Suspect]
     Active Substance: EFAVIRENZ
     Dosage: DOSAGE FORM: NOT SPECIFIED.
     Route: 048
  464. EFAVIRENZ [Suspect]
     Active Substance: EFAVIRENZ
     Dosage: UNK
     Route: 065
  465. EFAVIRENZ [Suspect]
     Active Substance: EFAVIRENZ
     Dosage: DOSAGE FORM: NOT SPECIFIED.
     Route: 048
  466. EFAVIRENZ [Suspect]
     Active Substance: EFAVIRENZ
     Dosage: UNK
     Route: 065
  467. EFAVIRENZ [Suspect]
     Active Substance: EFAVIRENZ
     Dosage: DOSAGE FORM: NOT SPECIFIED.
     Route: 048
  468. EFAVIRENZ [Suspect]
     Active Substance: EFAVIRENZ
     Dosage: UNK
     Route: 065
  469. EFAVIRENZ [Suspect]
     Active Substance: EFAVIRENZ
     Dosage: DOSAGE FORM: NOT SPECIFIED.
     Route: 048
  470. EFAVIRENZ [Suspect]
     Active Substance: EFAVIRENZ
     Dosage: UNK
     Route: 065
  471. EFAVIRENZ [Suspect]
     Active Substance: EFAVIRENZ
     Dosage: DOSAGE FORM: NOT SPECIFIED.
     Route: 048
  472. EFAVIRENZ [Suspect]
     Active Substance: EFAVIRENZ
     Dosage: UNK
     Route: 065
  473. FUZEON [Suspect]
     Active Substance: ENFUVIRTIDE
     Dosage: UNK
     Route: 058
  474. FUZEON [Suspect]
     Active Substance: ENFUVIRTIDE
     Dosage: FREQUENCY: TOTAL
     Route: 058
  475. ZIAGEN [Suspect]
     Active Substance: ABACAVIR SULFATE
     Route: 065
  476. ZIAGEN [Suspect]
     Active Substance: ABACAVIR SULFATE
     Route: 065
  477. ZIAGEN [Suspect]
     Active Substance: ABACAVIR SULFATE
     Route: 065
  478. ZIAGEN [Suspect]
     Active Substance: ABACAVIR SULFATE
     Route: 065
  479. ZIAGEN [Suspect]
     Active Substance: ABACAVIR SULFATE
     Route: 065
  480. ZIAGEN [Suspect]
     Active Substance: ABACAVIR SULFATE
     Route: 065
  481. ATAZANAVIR SULFATE [Suspect]
     Active Substance: ATAZANAVIR SULFATE
     Indication: HIV infection
     Route: 048
  482. ATAZANAVIR SULFATE [Suspect]
     Active Substance: ATAZANAVIR SULFATE
     Indication: Antiretroviral therapy
     Dosage: UNK
     Route: 065
  483. ATAZANAVIR SULFATE [Suspect]
     Active Substance: ATAZANAVIR SULFATE
     Route: 048
  484. ATAZANAVIR SULFATE [Suspect]
     Active Substance: ATAZANAVIR SULFATE
     Dosage: UNK
     Route: 065
  485. ATAZANAVIR SULFATE [Suspect]
     Active Substance: ATAZANAVIR SULFATE
     Route: 048
  486. ATAZANAVIR SULFATE [Suspect]
     Active Substance: ATAZANAVIR SULFATE
     Dosage: UNK
     Route: 065
  487. ATAZANAVIR SULFATE [Suspect]
     Active Substance: ATAZANAVIR SULFATE
     Route: 048
  488. ATAZANAVIR SULFATE [Suspect]
     Active Substance: ATAZANAVIR SULFATE
     Dosage: UNK
     Route: 065
  489. ATAZANAVIR SULFATE [Suspect]
     Active Substance: ATAZANAVIR SULFATE
     Route: 048
  490. ATAZANAVIR SULFATE [Suspect]
     Active Substance: ATAZANAVIR SULFATE
     Dosage: UNK
     Route: 065
  491. ATAZANAVIR SULFATE [Suspect]
     Active Substance: ATAZANAVIR SULFATE
     Route: 048
  492. ATAZANAVIR SULFATE [Suspect]
     Active Substance: ATAZANAVIR SULFATE
     Dosage: UNK
     Route: 065

REACTIONS (8)
  - Progressive external ophthalmoplegia [Recovering/Resolving]
  - Mitochondrial toxicity [Unknown]
  - Diplopia [Recovering/Resolving]
  - Eyelid ptosis [Recovering/Resolving]
  - Lipodystrophy acquired [Recovering/Resolving]
  - Blood lactic acid increased [Not Recovered/Not Resolved]
  - Dysphagia [Not Recovered/Not Resolved]
  - Ophthalmoplegia [Unknown]
